FAERS Safety Report 23234767 (Version 2)
Quarter: 2023Q4

REPORT INFORMATION
  Report Type: Spontaneous
  Country: GB (occurrence: GB)
  Receive Date: 20231128
  Receipt Date: 20231128
  Transmission Date: 20240109
  Serious: Yes (Hospitalization)
  Sender: FDA-Public Use
  Company Number: GB-ADVANZ PHARMA-202311010571

PATIENT
  Sex: Female

DRUGS (1)
  1. OCALIVA [Suspect]
     Active Substance: OBETICHOLIC ACID
     Dosage: 10 MG, QD (TAB 30)
     Route: 048

REACTIONS (2)
  - Complication associated with device [Unknown]
  - Cardiac pacemaker insertion [Unknown]
